FAERS Safety Report 8723255 (Version 5)
Quarter: 2013Q2

REPORT INFORMATION
  Report Type: Report from Study
  Country: FR (occurrence: FR)
  Receive Date: 20120814
  Receipt Date: 20130617
  Transmission Date: 20140414
  Serious: Yes (Hospitalization, Other)
  Sender: FDA-Public Use
  Company Number: FR-ACTELION-A-US2012-69535

PATIENT
  Age: 52 Year
  Sex: Male
  Weight: 75 kg

DRUGS (8)
  1. EPOPROSTENOL SODIUM [Suspect]
     Indication: PULMONARY ARTERIAL HYPERTENSION
     Dosage: 23 NG/KG, PER MIN
     Route: 042
     Dates: start: 20110412
  2. TRACLEER [Concomitant]
     Indication: PULMONARY ARTERIAL HYPERTENSION
     Dosage: UNK
     Route: 048
     Dates: start: 20071217
  3. SILDENAFIL [Concomitant]
     Dosage: UNK
     Dates: start: 20071217
  4. BI-TILDIEM [Concomitant]
     Dosage: UNK
     Dates: start: 20071217
  5. FLUINDIONE [Concomitant]
     Dosage: UNK
     Dates: start: 20071228
  6. POTASSIUM CHLORIDE [Concomitant]
     Dosage: UNK
     Dates: start: 20071228
  7. SPIRONOLACTONE [Concomitant]
     Dosage: UNK
     Dates: start: 20071228
  8. FUROSEMIDE [Concomitant]
     Dosage: UNK
     Dates: start: 20071228

REACTIONS (6)
  - Device occlusion [Recovered/Resolved]
  - Product quality issue [Unknown]
  - Product deposit [Recovered/Resolved]
  - Device alarm issue [Recovered/Resolved]
  - Fatigue [Recovered/Resolved]
  - Dyspnoea [Recovered/Resolved]
